FAERS Safety Report 8675195 (Version 3)
Quarter: 2013Q1

REPORT INFORMATION
  Report Type: Spontaneous
  Country: FR (occurrence: FR)
  Receive Date: 20120720
  Receipt Date: 20130227
  Transmission Date: 20140127
  Serious: Yes (Other)
  Sender: FDA-Public Use
  Company Number: FR-PFIZER INC-2012169126

PATIENT
  Age: 72 Year
  Sex: Male

DRUGS (9)
  1. VFEND [Suspect]
     Indication: LUNG DISORDER
     Dosage: 50 MG, 2X/DAY
     Route: 048
     Dates: start: 201111
  2. CYTARABINE [Suspect]
     Indication: MANTLE CELL LYMPHOMA RECURRENT
     Dosage: UNK
     Route: 042
     Dates: end: 20101210
  3. METHYLPREDNISOLONE [Suspect]
     Dosage: UNK
     Route: 042
     Dates: end: 20110415
  4. OXALIPLATIN [Suspect]
     Indication: MANTLE CELL LYMPHOMA RECURRENT
     Dosage: UNK
     Route: 042
     Dates: end: 20101210
  5. SINGULAIR [Suspect]
     Dosage: UNK
     Route: 055
  6. MABTHERA [Suspect]
     Indication: MANTLE CELL LYMPHOMA RECURRENT
     Dosage: UNK
     Route: 042
     Dates: end: 20110415
  7. POLARAMINE [Suspect]
     Dosage: UNK
     Route: 048
     Dates: end: 20110415
  8. PLITICAN [Suspect]
     Dosage: UNK
     Route: 042
     Dates: end: 20101210
  9. ZOPHREN [Suspect]
     Dosage: UNK
     Route: 048
     Dates: end: 20101210

REACTIONS (4)
  - Gynaecomastia [Not Recovered/Not Resolved]
  - Hot flush [Not Recovered/Not Resolved]
  - Hypogonadism [Not Recovered/Not Resolved]
  - Breast pain [Not Recovered/Not Resolved]
